FAERS Safety Report 25378377 (Version 1)
Quarter: 2025Q2

REPORT INFORMATION
  Report Type: Spontaneous
  Country: GB (occurrence: GB)
  Receive Date: 20250530
  Receipt Date: 20250530
  Transmission Date: 20250717
  Serious: Yes (Other)
  Sender: AUROBINDO
  Company Number: GB-MHRA-TPP50720995C28168002YC1747238081673

PATIENT
  Age: 40 Year
  Sex: Male
  Weight: 95 kg

DRUGS (2)
  1. AMOXICILLIN\CLAVULANIC ACID [Suspect]
     Active Substance: AMOXICILLIN\CLAVULANIC ACID
     Indication: Ill-defined disorder
     Route: 065
  2. CHOLECALCIFEROL [Concomitant]
     Active Substance: CHOLECALCIFEROL
     Indication: Ill-defined disorder
     Dosage: 2 DOSAGE FORM, EVERY WEEK (TAKE TWO TABLETS ONCE EVERY WEEK FOR 6 WEEKS (R...)
     Route: 065
     Dates: start: 20250514

REACTIONS (1)
  - Nasal dryness [Unknown]
